FAERS Safety Report 6392406-9 (Version None)
Quarter: 2009Q4

REPORT INFORMATION
  Report Type: 
  Country: None (occurrence: None)
  Receive Date: 20091007
  Receipt Date: 20090716
  Transmission Date: 20100525
  Serious: Yes (Hospitalization)
  Sender: FDA-Public Use
  Company Number: FR-PFIZER INC-2009266068

PATIENT
  Age: 42 Year

DRUGS (6)
  1. EPIRUBICIN HCL [Suspect]
     Indication: GASTRIC CANCER
     Dosage: 264 MG
     Dates: start: 20080421
  2. EPIRUBICIN HCL [Suspect]
     Dosage: 202 MG
     Dates: start: 20080630
  3. CISPLATIN [Suspect]
     Indication: GASTRIC CANCER
     Dosage: 314 MG
     Dates: start: 20080421
  4. CISPLATIN [Suspect]
     Dosage: 244 MG
     Dates: start: 20080630
  5. CAPECITABINE [Suspect]
     Indication: GASTRIC CANCER
     Dosage: 132000 MG
     Dates: start: 20080421
  6. CAPECITABINE [Suspect]
     Dosage: 126000 MG
     Dates: start: 20080630

REACTIONS (4)
  - DYSPHAGIA [None]
  - HAEMATOTOXICITY [None]
  - MEDICAL DEVICE COMPLICATION [None]
  - NAUSEA [None]
